FAERS Safety Report 4676197-5 (Version None)
Quarter: 2005Q2

REPORT INFORMATION
  Report Type: 
  Country: None (occurrence: None)
  Receive Date: 20050527
  Receipt Date: 20050414
  Transmission Date: 20051028
  Serious: No
  Sender: FDA-Public Use
  Company Number: US-GLAXOSMITHKLINE-A0554210A

PATIENT
  Age: 46 Year
  Sex: Female

DRUGS (2)
  1. WELLBUTRIN XL [Suspect]
     Indication: DEPRESSION
     Dosage: 150MG PER DAY
     Route: 048
     Dates: start: 20050412
  2. HOMEOPATHIC MEDICINES [Concomitant]

REACTIONS (7)
  - CHEST DISCOMFORT [None]
  - DRY MOUTH [None]
  - HYPERHIDROSIS [None]
  - LACRIMATION INCREASED [None]
  - NAUSEA [None]
  - SINUS CONGESTION [None]
  - THROAT IRRITATION [None]
